FAERS Safety Report 9552551 (Version 1)
Quarter: 2013Q3

REPORT INFORMATION
  Report Type: Spontaneous
  Country: US (occurrence: None)
  Receive Date: 20130724
  Receipt Date: 20130724
  Transmission Date: 20140515
  Serious: Yes (Life-Threatening, Hospitalization, Disabling)
  Sender: FDA-Public Use
  Company Number: PHEH2012US020485

PATIENT
  Age: 78 Year
  Sex: Female

DRUGS (1)
  1. GLEEVEC (IMATINIB) [Suspect]
     Indication: ACUTE LYMPHOCYTIC LEUKAEMIA
     Route: 048
     Dates: start: 20120914, end: 20120916

REACTIONS (5)
  - Blood potassium increased [None]
  - Malaise [None]
  - Hypotension [None]
  - Nausea [None]
  - Diarrhoea [None]
